FAERS Safety Report 14929475 (Version 1)
Quarter: 2018Q2

REPORT INFORMATION
  Report Type: Spontaneous
  Country: FR (occurrence: FR)
  Receive Date: 20180523
  Receipt Date: 20180523
  Transmission Date: 20180711
  Serious: Yes (Death, Life-Threatening, Hospitalization)
  Sender: FDA-Public Use
  Company Number: FR-TEVA-2018-FR-896017

PATIENT
  Age: 45 Year
  Sex: Female
  Weight: 47 kg

DRUGS (3)
  1. CLOPIXOL A ACTION SEMI-PROLONGEE 50 MG/ML, SOLUTION INJECTABLE I.M. [Interacting]
     Active Substance: ZUCLOPENTHIXOL ACETATE
     Indication: BIPOLAR DISORDER
     Route: 030
     Dates: start: 20171128
  2. ARIPIPRAZOLE. [Suspect]
     Active Substance: ARIPIPRAZOLE
     Indication: BIPOLAR DISORDER
     Dosage: 20 MILLIGRAM DAILY;
     Route: 048
     Dates: start: 20171119, end: 20171123
  3. OLANZAPINE. [Interacting]
     Active Substance: OLANZAPINE
     Indication: BIPOLAR DISORDER
     Dosage: 10 MILLIGRAM DAILY;
     Route: 048
     Dates: start: 20171123, end: 20171127

REACTIONS (4)
  - Shock [Fatal]
  - Drug interaction [Unknown]
  - Electrocardiogram QT prolonged [Fatal]
  - Coma [Fatal]

NARRATIVE: CASE EVENT DATE: 20171128
